FAERS Safety Report 6696627-7 (Version None)
Quarter: 2010Q2

REPORT INFORMATION
  Report Type: 
  Country: None (occurrence: None)
  Receive Date: 20100426
  Receipt Date: 20100421
  Transmission Date: 20101027
  Serious: Yes (Hospitalization)
  Sender: FDA-Public Use
  Company Number: B0648687A

PATIENT
  Sex: Female

DRUGS (9)
  1. AUGMENTIN '125' [Suspect]
     Indication: LUNG INFECTION
     Dosage: 1G THREE TIMES PER DAY
     Route: 048
     Dates: start: 20100225, end: 20100307
  2. DAFALGAN [Suspect]
     Indication: DRUG USE FOR UNKNOWN INDICATION
     Dosage: 1G FOUR TIMES PER DAY
     Route: 048
     Dates: start: 20100225, end: 20100307
  3. AMOXICILLIN [Concomitant]
     Indication: LUNG INFECTION
     Dosage: 1G PER DAY
     Route: 048
     Dates: start: 20100224, end: 20100224
  4. DOLIPRANE [Concomitant]
     Dosage: 1G THREE TIMES PER DAY
     Route: 048
     Dates: start: 20100224, end: 20100224
  5. ARICEPT [Concomitant]
     Route: 065
  6. CELECTOL [Concomitant]
     Route: 065
  7. COZAAR [Concomitant]
     Route: 065
  8. LASIX [Concomitant]
     Route: 065
  9. NORSET [Concomitant]
     Route: 065

REACTIONS (2)
  - PRURITUS [None]
  - RASH MACULO-PAPULAR [None]
